FAERS Safety Report 24116748 (Version 1)
Quarter: 2024Q3

REPORT INFORMATION
  Report Type: Spontaneous
  Country: US (occurrence: US)
  Receive Date: 20240722
  Receipt Date: 20240722
  Transmission Date: 20241017
  Serious: No
  Sender: ASTELLAS
  Company Number: US-ASTELLAS-2023US024383

PATIENT
  Age: 82 Year
  Sex: Female

DRUGS (2)
  1. MYRBETRIQ [Suspect]
     Active Substance: MIRABEGRON
     Indication: Product used for unknown indication
     Route: 065
     Dates: start: 202304
  2. MYRBETRIQ [Suspect]
     Active Substance: MIRABEGRON
     Dosage: 50 MG, ONCE DAILY (2 X 25MG)
     Route: 065
     Dates: start: 202307

REACTIONS (5)
  - Vulvovaginal erythema [Unknown]
  - Vulvovaginal burning sensation [Unknown]
  - Middle insomnia [Unknown]
  - Pollakiuria [Unknown]
  - Therapeutic product effect decreased [Unknown]
